FAERS Safety Report 18031770 (Version 1)
Quarter: 2020Q3

REPORT INFORMATION
  Report Type: Spontaneous
  Country: US (occurrence: US)
  Receive Date: 20200716
  Receipt Date: 20200716
  Transmission Date: 20201103
  Serious: No
  Sender: FDA-Public Use
  Company Number: US-MYLANLABS-2020M1061600

PATIENT
  Age: 76 Year
  Sex: Female
  Weight: 87.52 kg

DRUGS (2)
  1. AMLODIPINE [Suspect]
     Active Substance: AMLODIPINE BESYLATE
     Indication: PRODUCT USED FOR UNKNOWN INDICATION
     Dosage: UNK
     Route: 065
  2. BOSENTAN. [Concomitant]
     Active Substance: BOSENTAN
     Indication: PULMONARY ARTERIAL HYPERTENSION
     Dosage: 62.5 MILLIGRAM, BID
     Route: 048
     Dates: start: 20190613

REACTIONS (8)
  - Dizziness [Unknown]
  - Weight decreased [Unknown]
  - Product dose omission issue [Unknown]
  - Dyspnoea exertional [Unknown]
  - Neck injury [Recovering/Resolving]
  - Abdominal distension [Unknown]
  - Hypotension [Unknown]
  - Flatulence [Unknown]

NARRATIVE: CASE EVENT DATE: 202001
